FAERS Safety Report 5039949-8 (Version None)
Quarter: 2006Q2

REPORT INFORMATION
  Report Type: 
  Country: None (occurrence: None)
  Receive Date: 20060630
  Receipt Date: 20060623
  Transmission Date: 20061013
  Serious: Yes (Hospitalization, Other)
  Sender: FDA-Public Use
  Company Number: GB-JNJFOC-20060605130

PATIENT
  Sex: Male
  Weight: 99 kg

DRUGS (8)
  1. REMICADE [Suspect]
     Indication: RHEUMATOID ARTHRITIS
     Route: 042
  2. SULFASALAZINE [Concomitant]
     Route: 065
  3. METHOTREXATE [Concomitant]
     Route: 065
  4. PREDNISOLONE [Concomitant]
     Route: 065
  5. ARTHROTEC [Concomitant]
     Route: 065
  6. CALCICHEW [Concomitant]
     Route: 065
  7. FOLIC ACID [Concomitant]
     Route: 065
  8. HYDROXYCHLOROQUINE SULFATE [Concomitant]
     Route: 065

REACTIONS (1)
  - PULMONARY HYPERTENSION [None]
